FAERS Safety Report 22347210 (Version 1)
Quarter: 2023Q2

REPORT INFORMATION
  Report Type: Spontaneous
  Country: GB (occurrence: GB)
  Receive Date: 20230521
  Receipt Date: 20230521
  Transmission Date: 20230721
  Serious: Yes (Other)
  Sender: FDA-Public Use
  Company Number: None

PATIENT
  Sex: Female

DRUGS (1)
  1. OMEPRAZOLE [Suspect]
     Active Substance: OMEPRAZOLE
     Indication: Gastrooesophageal reflux disease
     Dosage: 20MG; ;
     Dates: start: 20230427

REACTIONS (2)
  - Diarrhoea [Recovering/Resolving]
  - Illness [Recovered/Resolved]

NARRATIVE: CASE EVENT DATE: 20230501
